FAERS Safety Report 12725146 (Version 1)
Quarter: 2016Q3

REPORT INFORMATION
  Report Type: Spontaneous
  Country: US (occurrence: US)
  Receive Date: 20160908
  Receipt Date: 20160908
  Transmission Date: 20161109
  Serious: No
  Sender: FDA-Public Use
  Company Number: US-TAKEDA-2016TUS014552

PATIENT

DRUGS (2)
  1. ENTYVIO [Suspect]
     Active Substance: VEDOLIZUMAB
     Indication: PRODUCT USED FOR UNKNOWN INDICATION
     Dosage: UNK
     Route: 065
  2. ROWASA [Concomitant]
     Active Substance: MESALAMINE
     Dosage: UNK, QD

REACTIONS (4)
  - Defaecation urgency [Unknown]
  - Haematochezia [Unknown]
  - Mucous stools [Unknown]
  - Frequent bowel movements [Unknown]
